FAERS Safety Report 14180403 (Version 1)
Quarter: 2017Q4

REPORT INFORMATION
  Report Type: Spontaneous
  Country: US (occurrence: US)
  Receive Date: 20171110
  Receipt Date: 20171110
  Transmission Date: 20180321
  Serious: No
  Sender: FDA-Public Use
  Company Number: US-BAUSCH-BL-2017-021232

PATIENT
  Age: 79 Year
  Sex: Male
  Weight: 84.9 kg

DRUGS (1)
  1. PROVENGE [Suspect]
     Active Substance: SIPULEUCEL-T
     Indication: PROSTATE CANCER
     Route: 042
     Dates: start: 20170623, end: 20170623

REACTIONS (1)
  - Haematoma [Not Recovered/Not Resolved]

NARRATIVE: CASE EVENT DATE: 20170710
